FAERS Safety Report 25215666 (Version 1)
Quarter: 2025Q2

REPORT INFORMATION
  Report Type: Spontaneous
  Country: US (occurrence: US)
  Receive Date: 20250418
  Receipt Date: 20250418
  Transmission Date: 20250717
  Serious: Yes (Other)
  Sender: BLUEPRINT MEDICINES
  Company Number: US-Blueprint Medicines Corporation-2025-AER-00777

PATIENT
  Age: 50 Year
  Sex: Female

DRUGS (3)
  1. AYVAKIT [Suspect]
     Active Substance: AVAPRITINIB
     Indication: Systemic mastocytosis
     Route: 065
  2. PEPCID [Concomitant]
     Active Substance: FAMOTIDINE
     Indication: Product used for unknown indication
     Route: 065
  3. PEPCID [Concomitant]
     Active Substance: FAMOTIDINE
     Route: 065

REACTIONS (7)
  - Systemic mastocytosis [Unknown]
  - Condition aggravated [Unknown]
  - Malaise [Unknown]
  - Illness [Unknown]
  - Laboratory test abnormal [Unknown]
  - 5-hydroxyindolacetic acid [Unknown]
  - Back disorder [Unknown]
